FAERS Safety Report 16754752 (Version 1)
Quarter: 2019Q3

REPORT INFORMATION
  Report Type: Spontaneous
  Country: US (occurrence: US)
  Receive Date: 20190711
  Receipt Date: 20190711
  Transmission Date: 20191005
  Serious: No
  Sender: FDA-Public Use
  Company Number: None

PATIENT
  Age: 64 Year
  Sex: Male

DRUGS (2)
  1. COSENTYX [Suspect]
     Active Substance: SECUKINUMAB
     Indication: ANKYLOSING SPONDYLITIS
     Dosage: ?          OTHER DOSE:150MG (1 PEN);?
     Route: 058
     Dates: start: 201802
  2. AMITIZA [Suspect]
     Active Substance: LUBIPROSTONE

REACTIONS (1)
  - Headache [None]
